FAERS Safety Report 8067319-7 (Version None)
Quarter: 2012Q1

REPORT INFORMATION
  Report Type: 
  Country: None (occurrence: None)
  Receive Date: 20120124
  Receipt Date: 20120113
  Transmission Date: 20120608
  Serious: Yes (Hospitalization)
  Sender: FDA-Public Use
  Company Number: ES-VIIV HEALTHCARE LIMITED-B0743495A

PATIENT
  Sex: Male
  Weight: 62 kg

DRUGS (12)
  1. MARAVIROC [Suspect]
     Indication: HIV INFECTION
     Dosage: 300MG TWICE PER DAY
     Dates: start: 20090611, end: 20110213
  2. DARUNAVIR [Suspect]
     Indication: HIV INFECTION
     Dosage: 900MG PER DAY
     Dates: start: 20090611
  3. ERTAPENEM [Concomitant]
     Dates: start: 20110620
  4. LINEZOLID [Concomitant]
     Dates: start: 20110531, end: 20110607
  5. RITONAVIR [Suspect]
     Indication: HIV INFECTION
     Dosage: 100MG PER DAY
     Dates: start: 20090611
  6. OMEPRAZOLE [Concomitant]
     Dates: start: 20100611
  7. MORPHINE [Concomitant]
     Dates: start: 20110801
  8. IBUPROFENO [Concomitant]
     Dates: start: 20100611
  9. HIDROFEROL [Concomitant]
     Dates: start: 20110411, end: 20110801
  10. CEFTRIAXONE [Concomitant]
     Dates: start: 20110522, end: 20110531
  11. BEMIPARIN [Concomitant]
     Dates: start: 20110611, end: 20110727
  12. CIPROFLOXACIN HCL [Concomitant]
     Dates: start: 20110616, end: 20110620

REACTIONS (4)
  - INFECTED NEOPLASM [None]
  - RECTAL NEOPLASM [None]
  - BLADDER NEOPLASM [None]
  - NEOPLASM PROSTATE [None]
